FAERS Safety Report 25881184 (Version 1)
Quarter: 2025Q4

REPORT INFORMATION
  Report Type: Spontaneous
  Country: CN (occurrence: CN)
  Receive Date: 20251004
  Receipt Date: 20251004
  Transmission Date: 20260117
  Serious: Yes (Life-Threatening, Hospitalization, Other)
  Sender: UNITED THERAPEUTICS
  Company Number: CN-UNITED THERAPEUTICS-UNT-2025-033781

PATIENT
  Sex: Female
  Weight: 0.99 kg

DRUGS (2)
  1. REMODULIN [Suspect]
     Active Substance: TREPROSTINIL
     Indication: Product used for unknown indication
     Dosage: 0.00125 ?G/KG, CONTINUING
  2. SILDENAFIL CITRATE [Concomitant]
     Active Substance: SILDENAFIL CITRATE
     Indication: Product used for unknown indication
     Dosage: 25 MG, QD

REACTIONS (6)
  - Neonatal respiratory failure [Recovering/Resolving]
  - Neonatal respiratory distress syndrome [Recovering/Resolving]
  - Premature baby [Recovered/Resolved]
  - Foetal exposure during pregnancy [Recovered/Resolved]
  - Low birth weight baby [Recovered/Resolved]
  - Hypotonia [Recovering/Resolving]
